FAERS Safety Report 8439052 (Version 2)
Quarter: 2013Q2

REPORT INFORMATION
  Report Type: Spontaneous
  Country: US (occurrence: None)
  Receive Date: 20120104
  Receipt Date: 20120508
  Transmission Date: 20140414
  Serious: Yes (Other)
  Sender: FDA-Public Use
  Company Number: 2011HGS-002628

PATIENT
  Age: 37 Year
  Sex: Female
  Weight: 52.16 kg

DRUGS (7)
  1. BENLYSTA [Suspect]
     Indication: SYSTEMIC LUPUS ERYTHEMATOSUS
     Dosage: 0. 2, 4 WEEKS THEN EVERY 4 WEEKS
     Route: 041
     Dates: start: 20110829
  2. PLAQUENIL [Concomitant]
  3. TOPAMAX [Concomitant]
  4. CELEXA [Concomitant]
  5. TRAMADOL HYDROCHLORIDE [Concomitant]
  6. VITAMIN D [Concomitant]
  7. ARAVA [Concomitant]

REACTIONS (2)
  - NAUSEA [None]
  - HEADACHE [None]
